FAERS Safety Report 7740908-2 (Version None)
Quarter: 2011Q3

REPORT INFORMATION
  Report Type: 
  Country: None (occurrence: None)
  Receive Date: 20110909
  Receipt Date: 20110817
  Transmission Date: 20111222
  Serious: No
  Sender: FDA-Public Use
  Company Number: US-BAYER-2011-074378

PATIENT
  Age: 41 Year
  Sex: Female

DRUGS (2)
  1. GADAVIST [Suspect]
     Indication: COMPUTERISED TOMOGRAM
     Dosage: UNK
     Dates: start: 20110815, end: 20110815
  2. GADAVIST [Suspect]
     Dosage: UNK
     Dates: start: 20110816, end: 20110816

REACTIONS (2)
  - PRURITUS [None]
  - RASH [None]
